FAERS Safety Report 9363672 (Version 3)
Quarter: 2013Q4

REPORT INFORMATION
  Report Type: Spontaneous
  Country: BR (occurrence: BR)
  Receive Date: 20130624
  Receipt Date: 20131230
  Transmission Date: 20140711
  Serious: Yes (Other)
  Sender: FDA-Public Use
  Company Number: BR-ROCHE-1237786

PATIENT
  Sex: Male
  Weight: 118 kg

DRUGS (8)
  1. RIVOTRIL [Suspect]
     Indication: DEPRESSION
     Route: 065
     Dates: start: 2003
  2. RIVOTRIL [Suspect]
     Indication: PANIC ATTACK
  3. RIVOTRIL [Suspect]
     Indication: BIPOLAR DISORDER
  4. PREDNISONE [Suspect]
     Indication: PRODUCT USED FOR UNKNOWN INDICATION
     Route: 065
  5. FLUOXETINE [Concomitant]
     Indication: DEPRESSION
  6. CARBAMAZEPINE [Concomitant]
     Indication: DEPRESSION
  7. PHENERGAN [Concomitant]
  8. OMEPRAZOLE [Concomitant]

REACTIONS (17)
  - Blood cholesterol increased [Unknown]
  - Weight increased [Unknown]
  - Fat tissue increased [Not Recovered/Not Resolved]
  - Visual impairment [Not Recovered/Not Resolved]
  - Amnesia [Not Recovered/Not Resolved]
  - Erectile dysfunction [Not Recovered/Not Resolved]
  - Hypoaesthesia [Not Recovered/Not Resolved]
  - Fatigue [Not Recovered/Not Resolved]
  - Malaise [Not Recovered/Not Resolved]
  - Feeling of despair [Not Recovered/Not Resolved]
  - Drug ineffective [Unknown]
  - Medication error [Unknown]
  - Hypotension [Unknown]
  - Speech disorder [Not Recovered/Not Resolved]
  - Bipolar disorder [Unknown]
  - Tachycardia [Unknown]
  - Lacrimation increased [Unknown]
